FAERS Safety Report 5291828-7 (Version None)
Quarter: 2007Q2

REPORT INFORMATION
  Report Type: 
  Country: None (occurrence: None)
  Receive Date: 20070406
  Receipt Date: 20070406
  Transmission Date: 20071010
  Serious: Yes (Life-Threatening, Hospitalization)
  Sender: FDA-Public Use
  Company Number: None

PATIENT
  Age: 56 Year
  Sex: Male
  Weight: 76.2043 kg

DRUGS (1)
  1. ASPIRIN [Suspect]
     Indication: CARDIAC DISORDER
     Dosage: 1 A DAY 81MG

REACTIONS (1)
  - MYOCARDIAL INFARCTION [None]
